FAERS Safety Report 18275168 (Version 1)
Quarter: 2020Q3

REPORT INFORMATION
  Report Type: Spontaneous
  Country: US (occurrence: US)
  Receive Date: 20200916
  Receipt Date: 20200916
  Transmission Date: 20201103
  Serious: No
  Sender: FDA-Public Use
  Company Number: US-ASTRAZENECA-2020SE97542

PATIENT
  Sex: Male

DRUGS (3)
  1. BYDUREON [Concomitant]
     Active Substance: EXENATIDE
  2. BYDUREON BCISE [Suspect]
     Active Substance: EXENATIDE
     Indication: DIABETES MELLITUS
     Route: 058
     Dates: start: 2005
  3. BYETTA [Concomitant]
     Active Substance: EXENATIDE

REACTIONS (4)
  - Blood pressure decreased [Unknown]
  - Product dose omission issue [Unknown]
  - Device issue [Unknown]
  - Weight decreased [Unknown]
